FAERS Safety Report 10141712 (Version 3)
Quarter: 2014Q2

REPORT INFORMATION
  Report Type: Spontaneous
  Country: US (occurrence: US)
  Receive Date: 20140429
  Receipt Date: 20140617
  Transmission Date: 20141212
  Serious: Yes (Death, Other)
  Sender: FDA-Public Use
  Company Number: PHHY2014US039313

PATIENT
  Age: 62 Year
  Sex: Female

DRUGS (23)
  1. DIOVAN [Suspect]
     Dosage: UNK UKN, UNK
  2. LIORESAL INTRATECAL [Suspect]
     Indication: MUSCLE SPASTICITY
     Dosage: UNK UKN, UNK
     Route: 037
  3. LIORESAL INTRATECAL [Suspect]
     Dosage: UNK UKN, UNK (MULTIPLE DOSE INCREASES)
     Route: 037
  4. LIORESAL INTRATECAL [Suspect]
     Dosage: 75.1 UG/DAY (DECREASED BY 88%)
     Route: 037
     Dates: start: 20140210
  5. LIORESAL INTRATECAL [Suspect]
     Dosage: 78 UG, DAILY
     Route: 037
  6. LIORESAL INTRATECAL [Suspect]
     Dosage: 48 UG/DAY
     Route: 037
     Dates: start: 20140320
  7. HYDRALAZINE [Suspect]
     Dosage: UNK UKN, UNK
  8. GABAPENTIN [Suspect]
     Dosage: UNK UKN, UNK
  9. PROVENTIL INHALER [Suspect]
     Dosage: UNK UKN, UNK
  10. ASPIRIN [Suspect]
     Dosage: UNK UKN, UNK
  11. COLACE [Suspect]
     Dosage: UNK UKN, UNK
  12. FERROUS SULFATE [Suspect]
     Dosage: UNK UKN, UNK
  13. ADVAIR [Suspect]
     Dosage: UNK UKN, UNK
  14. FOLIC ACID [Suspect]
     Dosage: UNK UKN, UNK
  15. DRUG THERAPY NOS [Suspect]
     Dosage: UNK UKN, UNK
     Route: 048
  16. HYDROCODONE [Suspect]
     Dosage: UNK UKN, UNK
  17. LEVEMIR [Suspect]
     Dosage: UNK UKN, UNK
  18. GLUCOPHAGE [Suspect]
     Dosage: UNK UKN, UNK
  19. PRILOSEC [Suspect]
     Dosage: UNK UKN, UNK
  20. MIRALAX [Suspect]
     Dosage: UNK UKN, UNK
  21. PHENERGAN [Suspect]
     Dosage: UNK UKN, UNK
  22. ZOLOFT [Suspect]
     Dosage: UNK UKN, UNK
  23. ZOCOR [Suspect]
     Dosage: UNK UKN, UNK

REACTIONS (7)
  - Cardiac arrest [Fatal]
  - Urinary retention [Unknown]
  - Gastric dilatation [Unknown]
  - Post procedural haemorrhage [Unknown]
  - Cardio-respiratory arrest [Unknown]
  - Constipation [Unknown]
  - No therapeutic response [Unknown]
